FAERS Safety Report 23158116 (Version 2)
Quarter: 2023Q4

REPORT INFORMATION
  Report Type: Spontaneous
  Country: IT (occurrence: IT)
  Receive Date: 20231108
  Receipt Date: 20231115
  Transmission Date: 20240110
  Serious: Yes (Other)
  Sender: FDA-Public Use
  Company Number: IT-MINISAL02-952553

PATIENT
  Age: 18 Year
  Sex: Female

DRUGS (3)
  1. IBUPROFEN [Suspect]
     Active Substance: IBUPROFEN
     Indication: Drug abuse
     Dosage: INGESTA TOTAL DE 6 COMPRIMIDOS DE 600 MG (TOTAL 3,6 GRAMOS)
     Route: 048
     Dates: start: 20231026, end: 20231026
  2. ACETAMINOPHEN [Suspect]
     Active Substance: ACETAMINOPHEN
     Indication: Drug abuse
     Dosage: INGESTA TOTAL DE 10 COMPRIMIDOS DE 500 MG (TOTAL 5 GRAMOS)
     Route: 048
     Dates: start: 20231026, end: 20231026
  3. BUTYLSCOPOLAMINE BROMIDE [Suspect]
     Active Substance: BUTYLSCOPOLAMINE BROMIDE
     Indication: Drug abuse
     Dosage: INGESTA TOTAL DE 3 COMPRIMIDOS
     Route: 048
     Dates: start: 20230926, end: 20231026

REACTIONS (3)
  - Abdominal pain upper [Recovered/Resolved]
  - Vomiting [Recovered/Resolved]
  - Drug abuse [Recovered/Resolved]

NARRATIVE: CASE EVENT DATE: 20231026
